FAERS Safety Report 4410364-0 (Version None)
Quarter: 2004Q2

REPORT INFORMATION
  Report Type: 
  Country: None (occurrence: None)
  Receive Date: 20040618
  Receipt Date: 20040318
  Transmission Date: 20050107
  Serious: No
  Sender: FDA-Public Use
  Company Number: US-JNJFOC-20040304823

PATIENT
  Age: 18 Year
  Sex: Female
  Weight: 73.0291 kg

DRUGS (5)
  1. ORTHO EVRA [Suspect]
     Indication: CONTRACEPTION
     Dosage: 1 DOSE(S), 3 IN 4 WEEK, TRANSDERMAL
     Route: 062
     Dates: start: 20030901
  2. ZYRTEC [Concomitant]
  3. NEXIUM [Concomitant]
  4. ALLERGY SHOTS (ALLERGY MEDICATION) INJECTION [Concomitant]
  5. IRRITABLE BOWEL MEDICATION (ALL OTHER THERAPEUTIC PRODUCTS) [Concomitant]

REACTIONS (1)
  - APPLICATION SITE REACTION [None]
